FAERS Safety Report 4885452-5 (Version None)
Quarter: 2005Q4

REPORT INFORMATION
  Report Type: 
  Country: None (occurrence: None)
  Receive Date: 20051216
  Receipt Date: 20050105
  Transmission Date: 20060501
  Serious: Yes (Other)
  Sender: FDA-Public Use
  Company Number: 2004239409US

PATIENT
  Age: 51 Year
  Sex: Female
  Weight: 51.25 kg

DRUGS (3)
  1. ARTHROTEC [Suspect]
     Indication: SYNOVITIS
     Dosage: 50 MG (50 MG,BID) ORAL
     Route: 048
     Dates: start: 20041001
  2. ARTHROTEC [Suspect]
     Indication: SYNOVITIS
     Dosage: 50 MG (50 MG,BID) ORAL
     Route: 048
     Dates: start: 20041001
  3. ALENDRONATE SODIUM [Concomitant]

REACTIONS (3)
  - DRUG ERUPTION [None]
  - DRUG INEFFECTIVE [None]
  - GASTROINTESTINAL HAEMORRHAGE [None]
